FAERS Safety Report 13023288 (Version 1)
Quarter: 2016Q4

REPORT INFORMATION
  Report Type: Report from Study
  Country: US (occurrence: US)
  Receive Date: 20161213
  Receipt Date: 20161213
  Transmission Date: 20170207
  Serious: Yes (Other)
  Sender: FDA-Public Use
  Company Number: US-MALLINCKRODT-T201605672

PATIENT
  Age: 65 Year
  Sex: Male

DRUGS (1)
  1. REPOSITORY CORTICOTROPIN INJECTION [Suspect]
     Active Substance: CORTICOTROPIN
     Indication: FOCAL SEGMENTAL GLOMERULOSCLEROSIS
     Dosage: 80U/1ML 2X/WK ( MON. AND THURS.)
     Route: 058
     Dates: start: 20161017, end: 20161024

REACTIONS (7)
  - Oedema peripheral [Recovering/Resolving]
  - Blood pressure fluctuation [Recovering/Resolving]
  - Respiratory tract infection [Recovering/Resolving]
  - Heart rate increased [Unknown]
  - Prostatic specific antigen increased [Unknown]
  - Neck pain [None]
  - Oropharyngeal pain [Recovered/Resolved]

NARRATIVE: CASE EVENT DATE: 20161020
